FAERS Safety Report 20559151 (Version 1)
Quarter: 2022Q1

REPORT INFORMATION
  Report Type: Report from Study
  Country: CA (occurrence: CA)
  Receive Date: 20220307
  Receipt Date: 20220307
  Transmission Date: 20220423
  Serious: Yes (Other)
  Sender: FDA-Public Use
  Company Number: CA-TAKEDA-2017TUS026011

PATIENT
  Age: 50 Year
  Sex: Female

DRUGS (9)
  1. VEDOLIZUMAB [Suspect]
     Active Substance: VEDOLIZUMAB
     Indication: Crohn^s disease
     Dosage: 300 MILLIGRAM
     Route: 042
     Dates: start: 20170606
  2. VEDOLIZUMAB [Suspect]
     Active Substance: VEDOLIZUMAB
     Dosage: 300 MILLIGRAM
     Route: 042
  3. PROGESTERONE [Concomitant]
     Active Substance: PROGESTERONE
     Dosage: 200 MILLIGRAM, QD
  4. PREMARIN [Concomitant]
     Active Substance: ESTROGENS, CONJUGATED
     Dosage: 1.25 MILLIGRAM, QD
  5. CEREBREX [Concomitant]
     Active Substance: CALCIUM GLYCEROPHOSPHATE\CALCIUM PHOSPHATE\GLUTAMIC ACID\VITAMIN B
     Dosage: UNK
  6. MOTRIN [Concomitant]
     Active Substance: IBUPROFEN
     Dosage: UNK
  7. TYLENOL                            /00020001/ [Concomitant]
     Dosage: UNK
  8. RATIO-LENOLTEC NO 1 [Concomitant]
     Dosage: UNK
  9. SUMATRIPTAN [Concomitant]
     Active Substance: SUMATRIPTAN
     Dosage: UNK

REACTIONS (4)
  - Malignant melanoma [Unknown]
  - Intervertebral disc degeneration [Unknown]
  - Intervertebral disc disorder [Unknown]
  - Musculoskeletal discomfort [Unknown]

NARRATIVE: CASE EVENT DATE: 20171101
